FAERS Safety Report 10213642 (Version 1)
Quarter: 2014Q2

REPORT INFORMATION
  Report Type: Spontaneous
  Country: US (occurrence: None)
  Receive Date: 20140530
  Receipt Date: 20140530
  Transmission Date: 20141212
  Serious: Yes (Death, Hospitalization)
  Sender: FDA-Public Use
  Company Number: FK201402007

PATIENT
  Age: 71 Year
  Sex: Female
  Weight: 92 kg

DRUGS (3)
  1. STERILE VANCOMYCIN HYDROCHLORIDE [Suspect]
     Indication: SKIN ULCER
     Dosage: 1000 MG, TIMES 10 DOSES, INTRAVENOUS (NOT OTHERWISE SPECIFIED)
     Route: 042
     Dates: start: 20140430, end: 20140430
  2. NORMAL SALINE [Suspect]
     Indication: PRODUCT USED FOR UNKNOWN INDICATION
     Dosage: 250 ML, UNKNOWN, INTRAVENOUS (NOT OTHERWISE SPECIFIED)
     Route: 042
     Dates: start: 20140430, end: 20140430
  3. STERILE WATER [Suspect]
     Indication: PRODUCT USED FOR UNKNOWN INDICATION
     Route: 042

REACTIONS (4)
  - Cardio-respiratory arrest [None]
  - Depressed level of consciousness [None]
  - Hypotension [None]
  - Nausea [None]
